FAERS Safety Report 8824688 (Version 2)
Quarter: 2012Q4

REPORT INFORMATION
  Report Type: Report from Study
  Country: KR (occurrence: KR)
  Receive Date: 20121004
  Receipt Date: 20121101
  Transmission Date: 20130627
  Serious: No
  Sender: FDA-Public Use
  Company Number: KR-ACTELION-A-CH2012-71985

PATIENT
  Age: 0 Day
  Sex: Male

DRUGS (2)
  1. ACT-293987 [Suspect]
     Indication: MATERNAL EXPOSURE DURING PREGNANCY
     Dosage: 400 ?g, bid
     Route: 064
     Dates: start: 20101124, end: 20120129
  2. TRACLEER [Suspect]
     Indication: MATERNAL EXPOSURE DURING PREGNANCY
     Dosage: UNK
     Route: 048
     Dates: start: 20080109, end: 20120215

REACTIONS (3)
  - Premature baby [Unknown]
  - Exposure during pregnancy [None]
  - Caesarean section [None]
